FAERS Safety Report 9663447 (Version 2)
Quarter: 2013Q4

REPORT INFORMATION
  Report Type: Spontaneous
  Country: US (occurrence: US)
  Receive Date: 20131101
  Receipt Date: 20131101
  Transmission Date: 20140711
  Serious: No
  Sender: FDA-Public Use
  Company Number: US-009507513-1208USA008454

PATIENT
  Sex: Female

DRUGS (1)
  1. HYZAAR [Suspect]
     Dosage: UNK DF, UNK
     Route: 048
     Dates: start: 20120730

REACTIONS (1)
  - Drug ineffective [Not Recovered/Not Resolved]
